FAERS Safety Report 9261573 (Version 1)
Quarter: 2013Q2

REPORT INFORMATION
  Report Type: Spontaneous
  Country: FR (occurrence: FR)
  Receive Date: 20130429
  Receipt Date: 20130429
  Transmission Date: 20140414
  Serious: Yes (Hospitalization, Other)
  Sender: FDA-Public Use
  Company Number: FR-PFIZER INC-2013127662

PATIENT
  Age: 18 Year
  Sex: Male

DRUGS (7)
  1. LYRICA [Suspect]
     Dosage: UNK
     Route: 048
     Dates: start: 20121117, end: 20121117
  2. TAZOCILLINE [Suspect]
     Dosage: UNK
     Route: 042
     Dates: start: 20121122, end: 20121123
  3. COLCHIMAX (COLCHICINE\DICYCLOMINE HYDROCHLORIDE) [Suspect]
     Dosage: 18 DF
     Route: 048
     Dates: start: 20121117, end: 20121117
  4. TRAMADOL HYDROCHLORIDE [Suspect]
     Dosage: 15 DF
     Route: 048
     Dates: start: 20121117, end: 20121117
  5. AUGMENTIN [Suspect]
     Dosage: UNK
     Route: 042
     Dates: start: 20121118, end: 20121122
  6. INEXIUM [Suspect]
     Dosage: UNK
     Route: 042
     Dates: start: 20121118, end: 20121125
  7. AMIKACIN MYLAN [Suspect]
     Dosage: UNK
     Route: 042
     Dates: start: 20121122, end: 20121123

REACTIONS (10)
  - Drug abuse [Unknown]
  - Rash maculo-papular [Recovered/Resolved]
  - Eosinophilia [Recovered/Resolved]
  - Transaminases increased [Recovered/Resolved]
  - Respiratory distress [Unknown]
  - Mendelson^s syndrome [Unknown]
  - Coma [Unknown]
  - Toxicity to various agents [Unknown]
  - Hyperthermia [Unknown]
  - Lung disorder [Unknown]
